FAERS Safety Report 14287290 (Version 1)
Quarter: 2017Q4

REPORT INFORMATION
  Report Type: Spontaneous
  Country: AU (occurrence: AU)
  Receive Date: 20171214
  Receipt Date: 20171214
  Transmission Date: 20180321
  Serious: Yes (Life-Threatening, Hospitalization, Other)
  Sender: FDA-Public Use
  Company Number: AU-IPCA LABORATORIES LIMITED-IPC201203-000112

PATIENT
  Age: 52 Year
  Sex: Female

DRUGS (20)
  1. TRAMADOL. [Suspect]
     Active Substance: TRAMADOL
     Indication: SOMATIC SYMPTOM DISORDER
     Dosage: UNK,UNK,AS NEEDED
  2. PREMARIN [Suspect]
     Active Substance: ESTROGENS, CONJUGATED
     Indication: MENOPAUSE
     Dosage: UNK,UNK,0.625 MG
  3. PRAVASTATIN. [Suspect]
     Active Substance: PRAVASTATIN
     Indication: BLOOD CHOLESTEROL INCREASED
     Dosage: UNK,UNK,40 MG
  4. TENORMIN [Suspect]
     Active Substance: ATENOLOL
     Dosage: UNK,UNK,12.5 MG PER DAY
  5. PENICILLIN [Suspect]
     Active Substance: PENICILLIN
  6. METOCLOPRAMIDE. [Suspect]
     Active Substance: METOCLOPRAMIDE
     Indication: STRESS AT WORK
     Dosage: UNK,UNK,AS NEEDED
  7. FLUOXETINE [Suspect]
     Active Substance: FLUOXETINE HYDROCHLORIDE
     Indication: STRESS AT WORK
  8. SERETIDE [Suspect]
     Active Substance: FLUTICASONE PROPIONATE\SALMETEROL XINAFOATE
  9. PAROXETINE. [Suspect]
     Active Substance: PAROXETINE
     Indication: STRESS AT WORK
     Dosage: UNK,UNK,60 MG PER DAY
  10. VENLAFAXINE [Suspect]
     Active Substance: VENLAFAXINE HYDROCHLORIDE
     Indication: STRESS AT WORK
     Dosage: UNK,UNK,300 MG PER DAY
  11. DIAZEPAM. [Suspect]
     Active Substance: DIAZEPAM
     Indication: STRESS AT WORK
     Dosage: UNK,UNK,5 MG AS NEEDED
  12. CELECOXIB. [Suspect]
     Active Substance: CELECOXIB
     Indication: SOMATIC SYMPTOM DISORDER
     Dosage: UNK,UNK,200 MG AS NEEDED
  13. CEPHALEXIN. [Suspect]
     Active Substance: CEPHALEXIN
  14. ERYTHROMYCIN. [Suspect]
     Active Substance: ERYTHROMYCIN
  15. CITALOPRAM [Suspect]
     Active Substance: CITALOPRAM HYDROBROMIDE
     Indication: STRESS AT WORK
     Dosage: UNK,UNK,UPTO 60 MG PER DAY
  16. IRBESARTAN. [Suspect]
     Active Substance: IRBESARTAN
     Indication: HYPERTENSION
     Dosage: UNK,UNK,300 MG PER DAY
  17. ATORVASTATIN [Suspect]
     Active Substance: ATORVASTATIN
     Indication: BLOOD CHOLESTEROL INCREASED
  18. OROXINE [Suspect]
     Active Substance: LEVOTHYROXINE SODIUM
     Dosage: UNK,UNK,100 MG PER DAY
  19. FLU VACCINE [Suspect]
     Active Substance: INFLUENZA VIRUS VACCINE
  20. VALACYCLOVIR [Suspect]
     Active Substance: VALACYCLOVIR HYDROCHLORIDE
     Indication: HERPES ZOSTER

REACTIONS (8)
  - Akathisia [Recovered/Resolved]
  - Restlessness [Unknown]
  - Irritability [Unknown]
  - Suicide attempt [Unknown]
  - Serotonin syndrome [Unknown]
  - Physical assault [Unknown]
  - Hyperbilirubinaemia [Unknown]
  - Mood swings [Unknown]
